FAERS Safety Report 8119494-3 (Version None)
Quarter: 2012Q1

REPORT INFORMATION
  Report Type: 
  Country: None (occurrence: None)
  Receive Date: 20120207
  Receipt Date: 20120127
  Transmission Date: 20120608
  Serious: Yes (Other)
  Sender: FDA-Public Use
  Company Number: PHHY2012ES007180

PATIENT
  Sex: Male

DRUGS (2)
  1. HIROBRIZ BREEZHALER [Suspect]
     Indication: CHRONIC OBSTRUCTIVE PULMONARY DISEASE
     Dosage: 150 UG, UNK
     Dates: start: 20120104, end: 20120127
  2. SPIRIVA [Concomitant]

REACTIONS (1)
  - HYPERTENSIVE CRISIS [None]
